FAERS Safety Report 9665058 (Version 3)
Quarter: 2013Q4

REPORT INFORMATION
  Report Type: Report from Study
  Country: CA (occurrence: CA)
  Receive Date: 20131101
  Receipt Date: 20131106
  Transmission Date: 20140711
  Serious: Yes (Other)
  Sender: FDA-Public Use
  Company Number: CA-ROCHE-801763

PATIENT
  Age: 62 Year
  Sex: Male
  Weight: 110 kg

DRUGS (12)
  1. ACTEMRA [Suspect]
     Indication: RHEUMATOID ARTHRITIS
     Route: 042
     Dates: start: 20101119, end: 20110713
  2. ACTEMRA [Suspect]
     Route: 042
  3. ACTEMRA [Suspect]
     Route: 042
  4. OXYCODONE [Suspect]
     Indication: PAIN
     Route: 065
  5. LIPITOR [Concomitant]
  6. DIOVAN [Concomitant]
  7. FOLIC ACID [Concomitant]
  8. CELEBREX [Concomitant]
  9. CLINDAMYCIN [Concomitant]
     Indication: TOOTH EXTRACTION
  10. ZANTAC [Concomitant]
  11. METHOTREXATE [Concomitant]
     Route: 048
  12. PREDNISONE [Concomitant]

REACTIONS (12)
  - Joint effusion [Recovering/Resolving]
  - Diverticulitis [Recovering/Resolving]
  - Headache [Unknown]
  - Drug dependence [Unknown]
  - Cyst removal [Unknown]
  - Synovitis [Unknown]
  - Abdominal discomfort [Not Recovered/Not Resolved]
  - Nasopharyngitis [Not Recovered/Not Resolved]
  - Weight increased [Not Recovered/Not Resolved]
  - Abdominal pain [Not Recovered/Not Resolved]
  - Liver function test abnormal [Unknown]
  - Pain [Unknown]
